FAERS Safety Report 7740158-X (Version None)
Quarter: 2011Q3

REPORT INFORMATION
  Report Type: 
  Country: None (occurrence: None)
  Receive Date: 20110909
  Receipt Date: 20110901
  Transmission Date: 20111222
  Serious: Yes (Life-Threatening)
  Sender: FDA-Public Use
  Company Number: DK-ROCHE-799942

PATIENT
  Sex: Female
  Weight: 89 kg

DRUGS (1)
  1. TRASTUZUMAB [Suspect]
     Dosage: DATE OF LAST DOSE PRIOR TO SAE: 16 MARCH 2005 FLUID
     Route: 042
     Dates: start: 20040413

REACTIONS (1)
  - BREAST CANCER [None]
